FAERS Safety Report 4495652-4 (Version None)
Quarter: 2004Q4

REPORT INFORMATION
  Report Type: 
  Country: None (occurrence: None)
  Receive Date: 20041103
  Receipt Date: 20041018
  Transmission Date: 20050328
  Serious: Yes (Death)
  Sender: FDA-Public Use
  Company Number: 2004-BP-10138RO

PATIENT
  Age: 31 Year

DRUGS (3)
  1. ROXICET TABLETS (OXYCODONE 5 MG AND ACETAMINOPHEN 325 MG TABLETS USP) [Suspect]
  2. METHADONE HCL [Suspect]
  3. OLANZAPINE [Suspect]

REACTIONS (2)
  - CARDIO-RESPIRATORY ARREST [None]
  - MULTIPLE DRUG OVERDOSE [None]
